FAERS Safety Report 11788484 (Version 1)
Quarter: 2015Q4

REPORT INFORMATION
  Report Type: Spontaneous
  Country: DE (occurrence: DE)
  Receive Date: 20151201
  Receipt Date: 20151201
  Transmission Date: 20160305
  Serious: Yes (Death, Hospitalization)
  Sender: FDA-Public Use
  Company Number: DE-DRREDDYS-USA/GER/15/0054331

PATIENT
  Age: 83 Year
  Sex: Female

DRUGS (14)
  1. ST JOHN^S WORT [Interacting]
     Active Substance: ST. JOHN^S WORT
     Indication: DEPRESSION
     Route: 065
  2. TORASEMIDE [Interacting]
     Active Substance: TORSEMIDE
     Indication: HYPERTENSION
     Route: 065
  3. ENALAPRIL [Interacting]
     Active Substance: ENALAPRIL
     Indication: HYPERTENSION
     Route: 065
  4. CIPROFLOXACIN. [Interacting]
     Active Substance: CIPROFLOXACIN
     Indication: CYSTITIS
  5. ALLOPURINOL. [Interacting]
     Active Substance: ALLOPURINOL
     Indication: GOUT
     Route: 065
  6. HYDROCHLOROTHIAZIDE/METOPROLOL [Interacting]
     Active Substance: HYDROCHLOROTHIAZIDE\METOPROLOL
     Indication: HYPERTENSION
     Route: 065
  7. HYDROCHLOROTHIAZIDE/METOPROLOL [Interacting]
     Active Substance: HYDROCHLOROTHIAZIDE\METOPROLOL
     Indication: CHRONIC KIDNEY DISEASE
  8. VALERIAN [Interacting]
     Active Substance: VALERIAN
     Indication: DEPRESSION
     Route: 065
  9. ENALAPRIL [Interacting]
     Active Substance: ENALAPRIL
     Indication: CHRONIC KIDNEY DISEASE
  10. AMLODIPINE [Interacting]
     Active Substance: AMLODIPINE BESYLATE
     Indication: HYPERTENSION
     Route: 065
  11. AMLODIPINE [Interacting]
     Active Substance: AMLODIPINE BESYLATE
     Indication: CHRONIC KIDNEY DISEASE
  12. PIPERACILLIN/TAZOBACTAM [Interacting]
     Active Substance: PIPERACILLIN SODIUM\TAZOBACTAM SODIUM
     Indication: URINARY TRACT INFECTION
     Route: 065
  13. CIPROFLOXACIN. [Suspect]
     Active Substance: CIPROFLOXACIN
     Indication: ESCHERICHIA URINARY TRACT INFECTION
     Route: 065
  14. TORASEMIDE [Interacting]
     Active Substance: TORSEMIDE
     Indication: CHRONIC KIDNEY DISEASE

REACTIONS (3)
  - Sepsis [Fatal]
  - Drug interaction [Unknown]
  - Toxic epidermal necrolysis [Unknown]
